FAERS Safety Report 9483884 (Version 2)
Quarter: 2013Q4

REPORT INFORMATION
  Report Type: Spontaneous
  Country: US (occurrence: US)
  Receive Date: 20130828
  Receipt Date: 20131205
  Transmission Date: 20140711
  Serious: Yes (Hospitalization, Other)
  Sender: FDA-Public Use
  Company Number: US-BAYER-2013-103694

PATIENT
  Age: 62 Year
  Sex: Female
  Weight: 91.61 kg

DRUGS (1)
  1. BETASERON [Suspect]
     Indication: PROGRESSIVE MULTIPLE SCLEROSIS
     Dosage: UNK UNK, QOD
     Dates: start: 1987, end: 201302

REACTIONS (5)
  - Cardiac pacemaker insertion [None]
  - Cerebrovascular accident [Not Recovered/Not Resolved]
  - Myocardial infarction [Not Recovered/Not Resolved]
  - Osteoporosis [None]
  - Shoulder arthroplasty [Not Recovered/Not Resolved]
